FAERS Safety Report 6104909-2 (Version None)
Quarter: 2009Q1

REPORT INFORMATION
  Report Type: 
  Country: None (occurrence: None)
  Receive Date: 20090304
  Receipt Date: 20090304
  Transmission Date: 20090719
  Serious: Yes (Hospitalization)
  Sender: FDA-Public Use
  Company Number: None

PATIENT
  Age: 31 Year
  Sex: Male
  Weight: 89 kg

DRUGS (2)
  1. VELCADE [Suspect]
     Indication: ANTIBODY TEST ABNORMAL
     Dosage: 2.8 MG TWICE IV PUSH 2.7 MG TWICE IV PUSH
     Route: 042
     Dates: start: 20090217, end: 20090220
  2. VELCADE [Suspect]
     Indication: ANTIBODY TEST ABNORMAL
     Dosage: 2.8 MG TWICE IV PUSH 2.7 MG TWICE IV PUSH
     Route: 042
     Dates: start: 20090225, end: 20090227

REACTIONS (1)
  - GASTROENTERITIS VIRAL [None]
